FAERS Safety Report 5593075-8 (Version None)
Quarter: 2008Q1

REPORT INFORMATION
  Report Type: 
  Country: None (occurrence: None)
  Receive Date: 20080114
  Receipt Date: 20080102
  Transmission Date: 20080703
  Serious: Yes (Death, Hospitalization, Other)
  Sender: FDA-Public Use
  Company Number: 100#03#2008-00163

PATIENT
  Age: 25 Year
  Sex: Male

DRUGS (10)
  1. CIPROFLOXACIN [Suspect]
     Dosage: 250 MG
  2. CLARITHROMYCIN [Suspect]
     Dosage: 250 MG
  3. SULFAMETHOXAZOLE AND TRIMETHOPRIM [Suspect]
     Indication: ANTIFUNGAL PROPHYLAXIS
  4. IBUPROFEN [Suspect]
     Indication: PAIN IN EXTREMITY
     Dosage: 200 MG
  5. COMBIVIR [Suspect]
     Indication: HIV INFECTION
  6. EFAVIRENZ [Suspect]
     Indication: HIV INFECTION
  7. LAMIVUDINE [Suspect]
     Indication: HIV INFECTION
  8. NEVIRAPINE [Suspect]
     Indication: HIV INFECTION
  9. TENOFOVIR (TENOFOVIR) [Suspect]
     Indication: HIV INFECTION
  10. LOPERAMIDE [Concomitant]

REACTIONS (10)
  - AGITATION [None]
  - BIOPSY LIVER ABNORMAL [None]
  - CONFUSIONAL STATE [None]
  - COUGH [None]
  - HAEMOGLOBIN DECREASED [None]
  - PAIN IN EXTREMITY [None]
  - PYREXIA [None]
  - SEPSIS [None]
  - VANISHING BILE DUCT SYNDROME [None]
  - VOMITING [None]
